FAERS Safety Report 8346862-7 (Version None)
Quarter: 2012Q2

REPORT INFORMATION
  Report Type: 
  Country: None (occurrence: None)
  Receive Date: 20120509
  Receipt Date: 20120503
  Transmission Date: 20120825
  Serious: Yes (Hospitalization)
  Sender: FDA-Public Use
  Company Number: FR-B.I. PHARMACEUTICALS,INC./RIDGEFIELD-2012-FF-00539FF

PATIENT
  Age: 78 Year
  Sex: Female

DRUGS (4)
  1. PRADAXA [Suspect]
     Indication: ATRIAL FIBRILLATION
     Dosage: 220 MG
     Route: 048
  2. CORDARONE [Concomitant]
  3. PREDNISONE TAB [Suspect]
     Route: 048
  4. LERCANIDIPINE [Concomitant]

REACTIONS (3)
  - FATIGUE [None]
  - GASTRIC ULCER [None]
  - HAEMOGLOBIN DECREASED [None]
